FAERS Safety Report 5101060-5 (Version None)
Quarter: 2006Q3

REPORT INFORMATION
  Report Type: 
  Country: None (occurrence: None)
  Receive Date: 20060911
  Receipt Date: 20060822
  Transmission Date: 20061208
  Serious: Yes (Other)
  Sender: FDA-Public Use
  Company Number: PHBS2006JP12728

PATIENT
  Age: 57 Year
  Sex: Female

DRUGS (2)
  1. FEMARA [Suspect]
     Indication: BREAST CANCER FEMALE
     Dosage: UNK, UNK
     Route: 048
     Dates: start: 20060726, end: 20060821
  2. ARIMIDEX [Suspect]
     Route: 048

REACTIONS (1)
  - CATARACT [None]
